FAERS Safety Report 6038524-6 (Version None)
Quarter: 2009Q1

REPORT INFORMATION
  Report Type: 
  Country: None (occurrence: None)
  Receive Date: 20090115
  Receipt Date: 20080310
  Transmission Date: 20090719
  Serious: No
  Sender: FDA-Public Use
  Company Number: US-KINGPHARMUSA00001-K200800307

PATIENT
  Age: 56 Year
  Sex: Female

DRUGS (1)
  1. EPIPEN [Suspect]
     Dosage: UNK, SINGLE
     Dates: start: 20080306, end: 20080306

REACTIONS (6)
  - ACCIDENTAL EXPOSURE [None]
  - EXPIRED DRUG ADMINISTERED [None]
  - INJECTION SITE ANAESTHESIA [None]
  - INJECTION SITE PALLOR [None]
  - NAIL DISCOLOURATION [None]
  - PARAESTHESIA [None]
